FAERS Safety Report 17543383 (Version 2)
Quarter: 2020Q1

REPORT INFORMATION
  Report Type: Spontaneous
  Country: CA (occurrence: CA)
  Receive Date: 20200316
  Receipt Date: 20200323
  Transmission Date: 20200409
  Serious: Yes (Other)
  Sender: FDA-Public Use
  Company Number: CA-CELLTRION INC.-2020CA017888

PATIENT

DRUGS (4)
  1. VENTOLIN [Concomitant]
     Active Substance: ALBUTEROL SULFATE
     Dosage: UNK, (PUFFER )
     Route: 065
  2. BISOPROLOL [Concomitant]
     Active Substance: BISOPROLOL
     Dosage: UNK
     Route: 065
  3. INFLECTRA [Suspect]
     Active Substance: INFLIXIMAB-DYYB
     Indication: CROHN^S DISEASE
     Dosage: 600 MG, EVERY 8 WEEKS
     Route: 042
     Dates: start: 20191119
  4. CODEINE [Concomitant]
     Active Substance: CODEINE
     Dosage: 60 MG, EVERY 4 HOURS
     Route: 065

REACTIONS (6)
  - Skin infection [Unknown]
  - Weight decreased [Unknown]
  - Bacterial infection [Unknown]
  - Night sweats [Unknown]
  - Influenza [Not Recovered/Not Resolved]
  - Off label use [Unknown]
